FAERS Safety Report 23569247 (Version 2)
Quarter: 2024Q2

REPORT INFORMATION
  Report Type: Spontaneous
  Country: US (occurrence: None)
  Receive Date: 20240227
  Receipt Date: 20240403
  Transmission Date: 20240716
  Serious: No
  Sender: FDA-Public Use
  Company Number: 2024A039537

PATIENT
  Sex: Female

DRUGS (1)
  1. TEZSPIRE [Suspect]
     Active Substance: TEZEPELUMAB-EKKO

REACTIONS (10)
  - Eye swelling [Unknown]
  - Pruritus [Unknown]
  - Gait disturbance [Unknown]
  - Swelling [Unknown]
  - Alopecia [Unknown]
  - Scab [Unknown]
  - Pain in extremity [Unknown]
  - Arthralgia [Unknown]
  - Adverse event [Unknown]
  - Pain [Unknown]
